FAERS Safety Report 15284249 (Version 1)
Quarter: 2018Q3

REPORT INFORMATION
  Report Type: Spontaneous
  Country: US (occurrence: US)
  Receive Date: 20180816
  Receipt Date: 20180816
  Transmission Date: 20181010
  Serious: Yes (Life-Threatening, Hospitalization, Other)
  Sender: FDA-Public Use
  Company Number: US-ALEMBIC PHARMACUETICALS LIMITED-2018SCAL000608

PATIENT

DRUGS (3)
  1. CALCIUM + VIT D [Suspect]
     Active Substance: CALCIUM\VITAMIN D
     Indication: OSTEOPOROSIS
     Dosage: UNK
     Route: 065
  2. HYDROCHLOROTHIAZIDE. [Suspect]
     Active Substance: HYDROCHLOROTHIAZIDE
     Indication: HYPERTENSION
     Dosage: UNK
     Route: 065
  3. MYCOPHENOLATE MOFETIL. [Concomitant]
     Active Substance: MYCOPHENOLATE MOFETIL
     Indication: PRODUCT USED FOR UNKNOWN INDICATION
     Dosage: UNK
     Route: 065

REACTIONS (4)
  - Milk-alkali syndrome [Recovering/Resolving]
  - Hypercalcaemia [Recovered/Resolved]
  - Incorrect dose administered [Unknown]
  - Pancreatitis [Unknown]
